FAERS Safety Report 8183573-5 (Version None)
Quarter: 2012Q1

REPORT INFORMATION
  Report Type: 
  Country: None (occurrence: None)
  Receive Date: 20120305
  Receipt Date: 20120224
  Transmission Date: 20120608
  Serious: Yes (Hospitalization, Other)
  Sender: FDA-Public Use
  Company Number: DE-JNJFOC-20111203541

PATIENT
  Sex: Female
  Weight: 72 kg

DRUGS (5)
  1. NOVALGIN [Concomitant]
     Dosage: 1 - 0 - 1
     Route: 065
  2. MELOXICAM [Concomitant]
     Dosage: 0 - 0 - 1
     Route: 065
  3. DURAGESIC-100 [Suspect]
     Indication: SCOLIOSIS
     Route: 062
     Dates: start: 20080501
  4. DURAGESIC-100 [Suspect]
     Indication: SPINAL OSTEOARTHRITIS
     Route: 062
     Dates: start: 20080501
  5. DURAGESIC-100 [Suspect]
     Indication: OSTEOARTHRITIS
     Route: 062
     Dates: start: 20080501

REACTIONS (2)
  - ROAD TRAFFIC ACCIDENT [None]
  - MULTIPLE FRACTURES [None]
